FAERS Safety Report 7770814-9 (Version None)
Quarter: 2011Q3

REPORT INFORMATION
  Report Type: 
  Country: None (occurrence: None)
  Receive Date: 20110922
  Receipt Date: 20110307
  Transmission Date: 20111222
  Serious: No
  Sender: FDA-Public Use
  Company Number: US-ASTRAZENECA-2011SE13163

PATIENT
  Age: 412 Month
  Sex: Male
  Weight: 158.8 kg

DRUGS (9)
  1. IBUPROFEN [Concomitant]
  2. SEROQUEL [Suspect]
     Indication: TACHYPHRENIA
     Route: 048
     Dates: start: 20110201
  3. SOMA [Concomitant]
  4. PERCOCET [Concomitant]
  5. SEROQUEL [Suspect]
     Route: 048
     Dates: start: 20110201
  6. LORAZEPAM [Concomitant]
  7. PAXIL [Concomitant]
  8. VYVANASE [Concomitant]
  9. PROPRANOLOL [Concomitant]

REACTIONS (5)
  - THERAPEUTIC RESPONSE UNEXPECTED [None]
  - NIGHTMARE [None]
  - ABNORMAL DREAMS [None]
  - NO ADVERSE EVENT [None]
  - OFF LABEL USE [None]
